FAERS Safety Report 8076255-1 (Version None)
Quarter: 2012Q1

REPORT INFORMATION
  Report Type: 
  Country: None (occurrence: None)
  Receive Date: 20120123
  Receipt Date: 20120104
  Transmission Date: 20120608
  Serious: Yes (Other)
  Sender: FDA-Public Use
  Company Number: 2011SP052427

PATIENT
  Age: 41 Year
  Sex: Female
  Weight: 78 kg

DRUGS (21)
  1. DUO-C.V.P [Concomitant]
  2. HYDROCHLOROTHIAZIDE [Concomitant]
  3. ONDANSETRON [Concomitant]
  4. DEXAMETHASONE ACETATE [Concomitant]
  5. ACYCLOVIR SODIUM [Concomitant]
  6. ABT-888 (VELIPARIB) [Suspect]
     Indication: OVARIAN CANCER
     Dosage: 40 MG, PO
     Route: 048
     Dates: start: 20101111
  7. LORAZEPAM [Concomitant]
  8. ONDANSETRON [Concomitant]
  9. PROCHLOROPERZINE EDYSYLATE [Concomitant]
  10. DIPHENHYDRAMINE HCL [Concomitant]
  11. TEMOZOLOMIDE [Suspect]
     Indication: OVARIAN CANCER
     Dosage: 150 MG/M2, PO
     Route: 048
     Dates: start: 20101111
  12. POTASSIUM [Concomitant]
  13. DOXORUBICIN HCL [Suspect]
     Indication: OVARIAN CANCER
     Dosage: 50MG/M2, IV
     Route: 042
     Dates: start: 20100901, end: 20100901
  14. DOXORUBICIN HCL [Suspect]
     Indication: OVARIAN CANCER
     Dosage: 50MG/M2, IV
     Route: 042
     Dates: start: 20100929, end: 20100929
  15. LISINOPRIL [Concomitant]
  16. OXYCODONE HCL [Concomitant]
  17. HYDROCORTISONE SODIUIM SUCCINATE [Concomitant]
  18. MULTI-VITAMIN [Concomitant]
  19. DOCUSATE SODIUM [Concomitant]
  20. PANADEINE CO [Concomitant]
  21. POLYETHYLENE GLYCOL [Concomitant]

REACTIONS (2)
  - ACTINIC KERATOSIS [None]
  - SQUAMOUS CELL CARCINOMA OF SKIN [None]
